FAERS Safety Report 23283543 (Version 3)
Quarter: 2024Q1

REPORT INFORMATION
  Report Type: Spontaneous
  Country: IT (occurrence: IT)
  Receive Date: 20231211
  Receipt Date: 20240102
  Transmission Date: 20240410
  Serious: Yes (Hospitalization, Other)
  Sender: FDA-Public Use
  Company Number: IT-DOCGEN-2307861

PATIENT
  Sex: Male

DRUGS (19)
  1. CLOZAPINE [Suspect]
     Active Substance: CLOZAPINE
     Indication: Hallucination, auditory
     Dosage: 200 MILLIGRAM, QD
     Route: 065
     Dates: start: 2004
  2. CLOZAPINE [Suspect]
     Active Substance: CLOZAPINE
     Indication: Depressive symptom
     Dosage: 225 MILLIGRAM, QD
     Route: 065
     Dates: start: 201811
  3. CLOZAPINE [Suspect]
     Active Substance: CLOZAPINE
     Indication: Schizophrenia
  4. CITALOPRAM [Suspect]
     Active Substance: CITALOPRAM HYDROBROMIDE
     Indication: Depressive symptom
     Dosage: 10 MILLIGRAM, QD
     Route: 065
     Dates: start: 2002
  5. CITALOPRAM [Suspect]
     Active Substance: CITALOPRAM HYDROBROMIDE
     Indication: Schizophrenia
     Dosage: 20 MILLIGRAM, QD
     Route: 065
     Dates: start: 201811
  6. BROTIZOLAM [Suspect]
     Active Substance: BROTIZOLAM
     Indication: Anxiety
     Dosage: UNK
     Route: 065
     Dates: start: 1990
  7. BROTIZOLAM [Suspect]
     Active Substance: BROTIZOLAM
     Indication: Schizophrenia
  8. HALOPERIDOL [Suspect]
     Active Substance: HALOPERIDOL
     Indication: Anxiety
     Dosage: 50 MILLIGRAM, MONTHLY
     Route: 065
     Dates: start: 1990, end: 2002
  9. HALOPERIDOL [Suspect]
     Active Substance: HALOPERIDOL
     Indication: Hallucination, auditory
     Dosage: 16 GTT DROPS, QD
     Route: 065
     Dates: start: 201811
  10. HALOPERIDOL [Suspect]
     Active Substance: HALOPERIDOL
     Indication: Schizophrenia
  11. BIPERIDEN [Suspect]
     Active Substance: BIPERIDEN
     Indication: Hallucination, auditory
     Dosage: 4 MILLIGRAM, QD
     Route: 065
     Dates: start: 201811
  12. BIPERIDEN [Suspect]
     Active Substance: BIPERIDEN
     Indication: Schizophrenia
  13. OLANZAPINE [Suspect]
     Active Substance: OLANZAPINE
     Indication: Depressive symptom
     Dosage: 20 MILLIGRAM, QD
     Route: 065
     Dates: start: 2002
  14. OLANZAPINE [Suspect]
     Active Substance: OLANZAPINE
     Indication: Schizophrenia
  15. RIVOTRIL [Suspect]
     Active Substance: CLONAZEPAM
     Indication: Hallucination, auditory
     Dosage: 12 GTT DROPS, QD
     Route: 065
     Dates: start: 201811
  16. RIVOTRIL [Suspect]
     Active Substance: CLONAZEPAM
     Indication: Schizophrenia
  17. ALPRAZOLAM [Suspect]
     Active Substance: ALPRAZOLAM
     Indication: Anxiety
     Dosage: UNK
     Route: 065
     Dates: start: 1990
  18. ALPRAZOLAM [Suspect]
     Active Substance: ALPRAZOLAM
     Indication: Schizophrenia
  19. LURASIDONE [Concomitant]
     Active Substance: LURASIDONE
     Dosage: UNK
     Route: 065

REACTIONS (6)
  - Psychomotor retardation [Unknown]
  - Weight increased [Unknown]
  - Sedation [Unknown]
  - Treatment noncompliance [Unknown]
  - Therapy partial responder [Unknown]
  - Medication error [Unknown]

NARRATIVE: CASE EVENT DATE: 20040101
